FAERS Safety Report 22182050 (Version 1)
Quarter: 2023Q2

REPORT INFORMATION
  Report Type: Spontaneous
  Country: US (occurrence: US)
  Receive Date: 20230406
  Receipt Date: 20230406
  Transmission Date: 20230722
  Serious: No
  Sender: FDA-Public Use
  Company Number: US-SA-SAC20230405001239

PATIENT
  Sex: Male

DRUGS (2)
  1. DUPIXENT [Suspect]
     Active Substance: DUPILUMAB
     Indication: Asthma
     Dosage: 300 MG, QOW
     Route: 058
     Dates: start: 202012
  2. FASENRA [Suspect]
     Active Substance: BENRALIZUMAB
     Dosage: UNK

REACTIONS (6)
  - Weight decreased [Unknown]
  - Head discomfort [Unknown]
  - Diarrhoea [Unknown]
  - Gastroenteritis viral [Unknown]
  - Dizziness [Unknown]
  - Headache [Unknown]
